FAERS Safety Report 25264934 (Version 2)
Quarter: 2025Q3

REPORT INFORMATION
  Report Type: Spontaneous
  Country: JP (occurrence: JP)
  Receive Date: 20250502
  Receipt Date: 20250708
  Transmission Date: 20251021
  Serious: Yes (Other)
  Sender: MERCK SHARP & DOHME LLC
  Company Number: JP-009507513-2276177

PATIENT
  Age: 6 Decade
  Sex: Male

DRUGS (3)
  1. KEYTRUDA [Suspect]
     Active Substance: PEMBROLIZUMAB
     Indication: Renal cell carcinoma stage IV
     Dosage: 200MG, Q3W
     Route: 041
     Dates: start: 202503, end: 202503
  2. LENVIMA [Suspect]
     Active Substance: LENVATINIB
     Indication: Renal cell carcinoma stage IV
     Dosage: 20MG ONCE A DAY
     Route: 048
     Dates: start: 202503, end: 202503
  3. LENVIMA [Suspect]
     Active Substance: LENVATINIB
     Indication: Renal cell carcinoma stage IV
     Route: 048
     Dates: start: 2025, end: 2025

REACTIONS (6)
  - Immune-mediated hepatic disorder [Unknown]
  - Rash [Recovering/Resolving]
  - Proteinuria [Recovering/Resolving]
  - Hypertension [Recovering/Resolving]
  - Immune-mediated hepatic disorder [Recovering/Resolving]
  - Proteinuria [Unknown]

NARRATIVE: CASE EVENT DATE: 20250101
